FAERS Safety Report 21974027 (Version 1)
Quarter: 2023Q1

REPORT INFORMATION
  Report Type: Spontaneous
  Country: US (occurrence: None)
  Receive Date: 20230207
  Receipt Date: 20230207
  Transmission Date: 20230417
  Serious: Yes (Death, Hospitalization)
  Sender: FDA-Public Use
  Company Number: None

PATIENT
  Age: 76 Year
  Sex: Female

DRUGS (2)
  1. OPSUMIT [Suspect]
     Active Substance: MACITENTAN
     Indication: Pulmonary arterial hypertension
     Dosage: FREQUENCY : DAILY;?
     Route: 048
     Dates: start: 20210701, end: 20221108
  2. OPSUMIT [Suspect]
     Active Substance: MACITENTAN
     Indication: Heritable pulmonary arterial hypertension

REACTIONS (11)
  - Loss of consciousness [None]
  - Leukocytosis [None]
  - Lactic acidosis [None]
  - Renal failure [None]
  - Rhabdomyolysis [None]
  - Hepatic function abnormal [None]
  - Haematochezia [None]
  - Mental status changes [None]
  - Sepsis [None]
  - Respiratory distress [None]
  - Cardiac arrest [None]

NARRATIVE: CASE EVENT DATE: 20221107
